FAERS Safety Report 23216472 (Version 1)
Quarter: 2023Q4

REPORT INFORMATION
  Report Type: Other
  Country: GB (occurrence: GB)
  Receive Date: 20231122
  Receipt Date: 20231122
  Transmission Date: 20240110
  Serious: Yes (Other)
  Sender: FDA-Public Use
  Company Number: GB-MACLEODS PHARMACEUTICALS US LTD-MAC2023044319

PATIENT

DRUGS (1)
  1. FEBUXOSTAT [Suspect]
     Active Substance: FEBUXOSTAT
     Indication: Product used for unknown indication
     Dosage: 40 MILLIGRAM, QD, HALF TABLET
     Route: 065

REACTIONS (8)
  - Sleep disorder [Unknown]
  - Mental disorder [Unknown]
  - Joint effusion [Unknown]
  - Malaise [Unknown]
  - Anxiety [Unknown]
  - Pollakiuria [Unknown]
  - Blood pressure increased [Unknown]
  - Hot flush [Unknown]
